FAERS Safety Report 5190716-4 (Version None)
Quarter: 2006Q4

REPORT INFORMATION
  Report Type: 
  Country: None (occurrence: None)
  Receive Date: 20061222
  Receipt Date: 20061128
  Transmission Date: 20070319
  Serious: Yes (Death, Life-Threatening, Hospitalization)
  Sender: FDA-Public Use
  Company Number: US-ROCHE-473224

PATIENT
  Age: 83 Year
  Sex: Female
  Weight: 31.3 kg

DRUGS (3)
  1. XELODA [Suspect]
     Indication: COLON CANCER STAGE IV
     Route: 048
     Dates: start: 20061001
  2. XELODA [Suspect]
     Route: 048
  3. XELODA [Suspect]
     Dosage: PATIENT FINISHED SECOND CYCLE ON 16 NOV 2006. STRENGTH REPORTED AS 1150 MG.
     Route: 048
     Dates: end: 20061116

REACTIONS (9)
  - CAECITIS [None]
  - DEHYDRATION [None]
  - ILEUS [None]
  - NAUSEA [None]
  - PALMAR-PLANTAR ERYTHRODYSAESTHESIA SYNDROME [None]
  - PELVIC FRACTURE [None]
  - SEPSIS [None]
  - STOMATITIS [None]
  - VOMITING [None]
